FAERS Safety Report 7775110-1 (Version None)
Quarter: 2011Q3

REPORT INFORMATION
  Report Type: 
  Country: None (occurrence: None)
  Receive Date: 20110923
  Receipt Date: 20110920
  Transmission Date: 20111222
  Serious: Yes (Death, Life-Threatening, Hospitalization, Other)
  Sender: FDA-Public Use
  Company Number: JP-ROCHE-673173

PATIENT
  Sex: Female
  Weight: 38 kg

DRUGS (22)
  1. AVASTIN [Suspect]
     Route: 041
     Dates: start: 20091104, end: 20091118
  2. EFUDEX [Concomitant]
     Route: 040
     Dates: start: 20091007, end: 20091007
  3. GRANISETRON [Concomitant]
     Route: 041
     Dates: start: 20091104, end: 20091118
  4. LOXONIN [Concomitant]
     Route: 048
     Dates: start: 20090530, end: 20091130
  5. EFUDEX [Concomitant]
     Route: 041
     Dates: start: 20090602, end: 20090901
  6. DECADRON [Concomitant]
     Route: 041
     Dates: start: 20090602, end: 20090916
  7. AVASTIN [Suspect]
     Indication: COLON CANCER METASTATIC
     Route: 041
     Dates: start: 20090701, end: 20090916
  8. LEUCOVORIN CALCIUM [Concomitant]
     Route: 041
     Dates: start: 20090602, end: 20090916
  9. EFUDEX [Concomitant]
     Route: 041
     Dates: start: 20091007, end: 20091001
  10. DECADRON [Concomitant]
     Route: 041
     Dates: start: 20091007, end: 20091007
  11. DECADRON [Concomitant]
     Route: 041
     Dates: start: 20091104, end: 20091118
  12. EFUDEX [Concomitant]
     Route: 041
     Dates: start: 20091104, end: 20091101
  13. AVASTIN [Suspect]
     Route: 041
     Dates: start: 20091007, end: 20091007
  14. CAMPTOSAR [Concomitant]
     Route: 041
     Dates: start: 20091007, end: 20091007
  15. CAMPTOSAR [Concomitant]
     Route: 041
     Dates: start: 20091104, end: 20091118
  16. LEUCOVORIN CALCIUM [Concomitant]
     Route: 041
     Dates: start: 20091007, end: 20091007
  17. GRANISETRON [Concomitant]
     Route: 041
     Dates: start: 20090602, end: 20090916
  18. OXALIPLATIN [Suspect]
     Indication: COLON CANCER METASTATIC
     Route: 041
     Dates: start: 20090602, end: 20090916
  19. GRANISETRON [Concomitant]
     Route: 041
     Dates: start: 20091007, end: 20091007
  20. LEUCOVORIN CALCIUM [Concomitant]
     Route: 041
     Dates: start: 20091104, end: 20091118
  21. EFUDEX [Concomitant]
     Route: 040
     Dates: start: 20090602, end: 20090916
  22. EFUDEX [Concomitant]
     Route: 040
     Dates: start: 20091104, end: 20091118

REACTIONS (6)
  - NEUROPATHY PERIPHERAL [None]
  - EPISTAXIS [None]
  - HEPATIC FAILURE [None]
  - SEPTIC SHOCK [None]
  - ILEAL ULCER [None]
  - ILEAL PERFORATION [None]
